FAERS Safety Report 19253754 (Version 1)
Quarter: 2021Q2

REPORT INFORMATION
  Report Type: Spontaneous
  Country: DE (occurrence: DE)
  Receive Date: 20210513
  Receipt Date: 20210513
  Transmission Date: 20210717
  Serious: Yes (Other)
  Sender: FDA-Public Use
  Company Number: DE-HIKMA PHARMACEUTICALS USA INC.-DE-H14001-21-02180

PATIENT
  Age: 60 Year
  Sex: Male

DRUGS (1)
  1. CEFUROXIM HIKMA 1.5G [Suspect]
     Active Substance: CEFUROXIME SODIUM
     Indication: ORTHOPAEDIC PROCEDURE
     Dosage: 1.5G SINGLE SHOT
     Route: 042
     Dates: start: 20210503

REACTIONS (3)
  - Hypotension [Recovered/Resolved]
  - Bradycardia [Recovered/Resolved]
  - Nausea [Recovered/Resolved]

NARRATIVE: CASE EVENT DATE: 20210503
